FAERS Safety Report 5151441-9 (Version None)
Quarter: 2006Q4

REPORT INFORMATION
  Report Type: 
  Country: None (occurrence: None)
  Receive Date: 20061114
  Receipt Date: 20061114
  Transmission Date: 20070319
  Serious: Yes (Hospitalization, Other)
  Sender: FDA-Public Use
  Company Number: None

PATIENT
  Age: 29 Year
  Sex: Female
  Weight: 78.4723 kg

DRUGS (4)
  1. EQUATE EXTRA STRENGTH  PAIN  EXTRA STRENGTH PERRIGO, ALLEGAN MI 49010 [Suspect]
     Indication: CHEST PAIN
     Dosage: 1000 MG   2 X DAY   PO
     Route: 048
     Dates: start: 20061109, end: 20061110
  2. EQUATE EXTRA STRENGTH  PAIN  EXTRA STRENGTH PERRIGO, ALLEGAN MI 49010 [Suspect]
     Indication: HEADACHE
     Dosage: 1000 MG   2 X DAY   PO
     Route: 048
     Dates: start: 20061109, end: 20061110
  3. EQUATE EXTRA STRENGTH  PAIN  EXTRA STRENGTH PERRIGO, ALLEGAN MI 49010 [Suspect]
     Indication: HYPERSENSITIVITY
     Dosage: 1000 MG   2 X DAY   PO
     Route: 048
     Dates: start: 20061109, end: 20061110
  4. EQUATE EXTRA STRENGTH  PAIN  EXTRA STRENGTH PERRIGO, ALLEGAN MI 49010 [Suspect]
     Indication: SINUSITIS
     Dosage: 1000 MG   2 X DAY   PO
     Route: 048
     Dates: start: 20061109, end: 20061110

REACTIONS (5)
  - BLOOD PRESSURE INCREASED [None]
  - CHEST PAIN [None]
  - PHARMACEUTICAL PRODUCT COMPLAINT [None]
  - POOR QUALITY DRUG ADMINISTERED [None]
  - THROMBOSIS [None]
